FAERS Safety Report 4325324-8 (Version None)
Quarter: 2004Q1

REPORT INFORMATION
  Report Type: 
  Country: None (occurrence: None)
  Receive Date: 20040323
  Receipt Date: 20040318
  Transmission Date: 20041129
  Serious: Yes (Life-Threatening)
  Sender: FDA-Public Use
  Company Number: 200410267BVD

PATIENT
  Age: 54 Year
  Sex: Female

DRUGS (4)
  1. NIMOTOP [Suspect]
     Indication: PERIPHERAL OCCLUSIVE DISEASE
     Dosage: 30MG , TOTAL DAILY, ORAL
     Route: 048
     Dates: end: 20031027
  2. ASS 100 HEXAL (ACETYLSALICYLIC ACID) [Suspect]
     Indication: CEREBROVASCULAR ACCIDENT PROPHYLAXIS
     Dosage: 100 MG, TOTAL DAILY, ORAL
     Route: 048
     Dates: end: 20031027
  3. CLAUDICAT (PENTOXIFYLLINE) [Suspect]
     Indication: PERIPHERAL OCCLUSIVE DISEASE
     Dosage: 600 MG, TOTAL DAILY, ORAL
     Route: 048
     Dates: end: 20031027
  4. NITRENDIPIN-RATIOPHARM (NITRENDIPINE) [Suspect]
     Indication: HYPERTENSION
     Dosage: 10 MG, TOTAL DAILY
     Dates: end: 20031027

REACTIONS (7)
  - CEREBRAL HAEMORRHAGE [None]
  - COMPUTERISED TOMOGRAM ABNORMAL [None]
  - DYSARTHRIA [None]
  - FALL [None]
  - PROTHROMBIN TIME PROLONGED [None]
  - SUBDURAL HAEMORRHAGE [None]
  - SWELLING [None]
